FAERS Safety Report 9025087 (Version 1)
Quarter: 2013Q1

REPORT INFORMATION
  Report Type: Report from Study
  Country: VE (occurrence: VE)
  Receive Date: 20130121
  Receipt Date: 20130121
  Transmission Date: 20140127
  Serious: Yes (Other)
  Sender: FDA-Public Use
  Company Number: VE-ABBOTT-13P-178-1036867-00

PATIENT
  Sex: Male

DRUGS (2)
  1. HUMIRA [Suspect]
     Indication: RHEUMATOID ARTHRITIS
     Route: 058
     Dates: start: 201206, end: 201206
  2. ATENOLOL [Concomitant]
     Indication: HYPERTENSION
     Dosage: ROUTE: VO

REACTIONS (3)
  - Prostatitis [Recovered/Resolved with Sequelae]
  - Anuria [Unknown]
  - Cough [Recovered/Resolved]
